FAERS Safety Report 13600017 (Version 4)
Quarter: 2017Q2

REPORT INFORMATION
  Report Type: Spontaneous
  Country: FR (occurrence: FR)
  Receive Date: 20170601
  Receipt Date: 20170618
  Transmission Date: 20170830
  Serious: Yes (Hospitalization)
  Sender: FDA-Public Use
  Company Number: FR-ROCHE-1941984

PATIENT
  Age: 73 Year
  Sex: Male

DRUGS (16)
  1. LYRICA [Concomitant]
     Active Substance: PREGABALIN
     Dosage: LONG-TERM TREATMENT
     Route: 048
  2. MABTHERA [Suspect]
     Active Substance: RITUXIMAB
     Indication: CHRONIC LYMPHOCYTIC LEUKAEMIA
     Route: 042
     Dates: start: 201612
  3. RAMIPRIL. [Concomitant]
     Active Substance: RAMIPRIL
     Route: 048
  4. MORPHINE [Concomitant]
     Active Substance: MORPHINE
  5. FLUDARA [Suspect]
     Active Substance: FLUDARABINE PHOSPHATE
     Route: 042
     Dates: start: 20170209
  6. ZELITREX [Concomitant]
     Active Substance: VALACYCLOVIR HYDROCHLORIDE
     Dosage: LONG-TERM TREATMENT
     Route: 048
  7. LYRICA [Concomitant]
     Active Substance: PREGABALIN
     Dosage: LONG-TERM TREATMENT
     Route: 048
  8. ENDOXAN [Suspect]
     Active Substance: CYCLOPHOSPHAMIDE
     Route: 042
     Dates: start: 20170209
  9. BACTRIM [Concomitant]
     Active Substance: SULFAMETHOXAZOLE\TRIMETHOPRIM
     Dosage: LONG-TERM TREATMENT. 800/160 MG
     Route: 048
  10. FLUDARA [Suspect]
     Active Substance: FLUDARABINE PHOSPHATE
     Indication: CHRONIC LYMPHOCYTIC LEUKAEMIA
     Route: 042
     Dates: start: 201612
  11. KARDEGIC [Concomitant]
     Active Substance: ASPIRIN LYSINE
     Dosage: LONG-TERM TREATMENT
     Route: 048
  12. MABTHERA [Suspect]
     Active Substance: RITUXIMAB
     Route: 042
     Dates: start: 20170209
  13. ENDOXAN [Suspect]
     Active Substance: CYCLOPHOSPHAMIDE
     Indication: CHRONIC LYMPHOCYTIC LEUKAEMIA
     Route: 042
     Dates: start: 201612
  14. SKENAN [Concomitant]
     Active Substance: MORPHINE SULFATE
     Dosage: LONG-TERM TREATMENT
     Route: 048
  15. ACTISKENAN [Concomitant]
     Active Substance: MORPHINE SULFATE
     Dosage: LONG-TERM TREATMENT
     Route: 048
  16. MIOREL (FRANCE) [Concomitant]
     Active Substance: METHOCARBAMOL
     Route: 048

REACTIONS (2)
  - Febrile neutropenia [Recovered/Resolved]
  - Haemolytic anaemia [Not Recovered/Not Resolved]

NARRATIVE: CASE EVENT DATE: 20170219
